FAERS Safety Report 10849291 (Version 1)
Quarter: 2015Q1

REPORT INFORMATION
  Report Type: Spontaneous
  Country: US (occurrence: US)
  Receive Date: 20150221
  Receipt Date: 20150221
  Transmission Date: 20150721
  Serious: No
  Sender: FDA-Public Use
  Company Number: US-CELGENEUS-163-21880-14050727

PATIENT
  Sex: Male

DRUGS (1)
  1. REVLIMID [Suspect]
     Active Substance: LENALIDOMIDE
     Indication: MYELODYSPLASTIC SYNDROME
     Dosage: 5 MILLIGRAM
     Route: 048
     Dates: start: 201404

REACTIONS (7)
  - Asthenia [Unknown]
  - Chest pain [Unknown]
  - Visual impairment [Unknown]
  - Dizziness [Unknown]
  - Feeling abnormal [Unknown]
  - Back pain [Unknown]
  - Tremor [Unknown]
